FAERS Safety Report 23567530 (Version 2)
Quarter: 2024Q2

REPORT INFORMATION
  Report Type: Spontaneous
  Country: US (occurrence: US)
  Receive Date: 20240226
  Receipt Date: 20240515
  Transmission Date: 20240715
  Serious: Yes (Other)
  Sender: FDA-Public Use
  Company Number: US-BRISTOL-MYERS SQUIBB COMPANY-2024-028196

PATIENT
  Age: 75 Year
  Sex: Female

DRUGS (1)
  1. LENALIDOMIDE [Suspect]
     Active Substance: LENALIDOMIDE
     Indication: Plasma cell myeloma
     Dosage: TAKE 1 CAPSULE BY MOUTH EVERY DAY FOR 14 DAYS FOLLOWED BY 7 DAYS
     Route: 048
     Dates: start: 20240219

REACTIONS (6)
  - Therapy interrupted [Recovered/Resolved]
  - Product supply issue [Unknown]
  - Chronic sinusitis [Unknown]
  - Back pain [Unknown]
  - Off label use [Unknown]
  - Product distribution issue [Recovered/Resolved]
